FAERS Safety Report 9685536 (Version 2)
Quarter: 2014Q3

REPORT INFORMATION
  Report Type: Spontaneous
  Country: FR (occurrence: FR)
  Receive Date: 20131113
  Receipt Date: 20140806
  Transmission Date: 20150326
  Serious: Yes (Hospitalization)
  Sender: FDA-Public Use
  Company Number: FR-BRISTOL-MYERS SQUIBB COMPANY-19803642

PATIENT
  Age: 74 Year
  Sex: Male

DRUGS (8)
  1. PLAVIX [Suspect]
     Active Substance: CLOPIDOGREL BISULFATE
     Route: 048
  2. NEXAVAR [Suspect]
     Active Substance: SORAFENIB
     Indication: HEPATOCELLULAR CARCINOMA
     Dosage: TABLET400MG,2 IN 1D
     Route: 048
     Dates: start: 20130612
  3. FORTIMEL [Concomitant]
     Active Substance: DIETARY SUPPLEMENT
  4. GLUCOPHAGE [Suspect]
     Active Substance: METFORMIN HYDROCHLORIDE
     Dosage: 850MG,3 IN 1D
     Route: 048
  5. TAHOR [Suspect]
     Active Substance: ATORVASTATIN CALCIUM
     Route: 048
  6. GLICLAZIDE [Suspect]
     Active Substance: GLICLAZIDE
     Route: 048
  7. INEXIUM [Suspect]
     Active Substance: ESOMEPRAZOLE
     Route: 048
  8. LOVENOX [Suspect]
     Active Substance: ENOXAPARIN SODIUM
     Dosage: SOLUTION FOR INJECTION
     Route: 058

REACTIONS (8)
  - Cognitive disorder [None]
  - Altered state of consciousness [Recovered/Resolved]
  - Partial seizures [Recovered/Resolved]
  - Arteriosclerosis [None]
  - Central nervous system lesion [None]
  - Somnolence [None]
  - Aphasia [Recovered/Resolved]
  - Confusional state [None]

NARRATIVE: CASE EVENT DATE: 20130622
